FAERS Safety Report 11828289 (Version 2)
Quarter: 2017Q1

REPORT INFORMATION
  Report Type: Spontaneous
  Country: US (occurrence: US)
  Receive Date: 20151211
  Receipt Date: 20170315
  Transmission Date: 20170428
  Serious: Yes (Hospitalization, Other)
  Sender: FDA-Public Use
  Company Number: US-ELI_LILLY_AND_COMPANY-US201512000742

PATIENT
  Sex: Male
  Weight: 127.89 kg

DRUGS (16)
  1. INVEGA [Concomitant]
     Active Substance: PALIPERIDONE
     Dosage: 9 MG, QD
     Route: 065
  2. CYMBALTA [Suspect]
     Active Substance: DULOXETINE HYDROCHLORIDE
     Indication: DEPRESSION
  3. DULOXETINE HYDROCHLORIDE. [Suspect]
     Active Substance: DULOXETINE HYDROCHLORIDE
     Indication: PRODUCT USED FOR UNKNOWN INDICATION
     Dosage: UNK, UNKNOWN
     Route: 065
  4. TRAZODONE [Concomitant]
     Active Substance: TRAZODONE HYDROCHLORIDE
     Dosage: 400 MG, EACH EVENING
  5. CLONAZEPAM. [Concomitant]
     Active Substance: CLONAZEPAM
     Dosage: 1 MG, TID
  6. LAMICTAL [Concomitant]
     Active Substance: LAMOTRIGINE
     Dosage: 400 MG, QD
     Route: 048
  7. LAMOTRIGINE. [Concomitant]
     Active Substance: LAMOTRIGINE
     Dosage: 150 MG, QD
  8. LAMOTRIGINE. [Concomitant]
     Active Substance: LAMOTRIGINE
     Dosage: 200 MG, EACH MORNING
  9. LATUDA [Concomitant]
     Active Substance: LURASIDONE HYDROCHLORIDE
     Indication: MOOD ALTERED
     Dosage: 60 MG, EACH EVENING
     Route: 048
  10. BUSPIRONE [Concomitant]
     Active Substance: BUSPIRONE HYDROCHLORIDE
     Dosage: 15 MG, TID
  11. NEUROTIN                           /00949202/ [Concomitant]
     Active Substance: ACETYLCARNITINE HYDROCHLORIDE
     Dosage: 300 MG, TID
  12. CYMBALTA [Suspect]
     Active Substance: DULOXETINE HYDROCHLORIDE
     Indication: PAIN
     Dosage: UNK, UNKNOWN
     Route: 048
  13. LYRICA [Concomitant]
     Active Substance: PREGABALIN
     Indication: PRODUCT USED FOR UNKNOWN INDICATION
     Dosage: 75 MG, BID
     Route: 065
  14. VISTARIL                           /00058402/ [Concomitant]
     Active Substance: HYDROXYZINE HYDROCHLORIDE
     Dosage: 25 MG, BID
  15. LAMICTAL [Concomitant]
     Active Substance: LAMOTRIGINE
     Dosage: 200 MG, QD
  16. LATUDA [Concomitant]
     Active Substance: LURASIDONE HYDROCHLORIDE
     Dosage: 80 MG, EACH EVENING
     Route: 048

REACTIONS (35)
  - Fear [Unknown]
  - Hyperhidrosis [Unknown]
  - Aggression [Unknown]
  - Nausea [Unknown]
  - Drug withdrawal syndrome [Unknown]
  - Disturbance in attention [Unknown]
  - Tremor [Unknown]
  - Sensory disturbance [Unknown]
  - Vertigo [Unknown]
  - Seizure [Unknown]
  - Headache [Unknown]
  - Affect lability [Unknown]
  - Tinnitus [Unknown]
  - Suicide attempt [Unknown]
  - Dyspnoea [Unknown]
  - Confusional state [Unknown]
  - Influenza like illness [Unknown]
  - Irritability [Unknown]
  - Paraesthesia [Unknown]
  - Lethargy [Unknown]
  - Anxiety [Unknown]
  - Mood altered [Unknown]
  - Agitation [Unknown]
  - Nightmare [Unknown]
  - Diarrhoea [Unknown]
  - Sleep disorder [Unknown]
  - Depressed mood [Unknown]
  - Suicidal ideation [Unknown]
  - Crying [Unknown]
  - Migraine [Unknown]
  - Dizziness [Unknown]
  - Insomnia [Unknown]
  - Hallucination [Unknown]
  - Memory impairment [Unknown]
  - Fatigue [Unknown]
